FAERS Safety Report 12916033 (Version 1)
Quarter: 2016Q4

REPORT INFORMATION
  Report Type: Spontaneous
  Country: US (occurrence: US)
  Receive Date: 20161107
  Receipt Date: 20161107
  Transmission Date: 20170207
  Serious: No
  Sender: FDA-Public Use
  Company Number: US-AUROBINDO-AUR-APU-2016-07422

PATIENT
  Sex: Female

DRUGS (1)
  1. METOPROLOL TARTRATE FILM COATED TABLETS USP 100 MG [Suspect]
     Active Substance: METOPROLOL TARTRATE
     Indication: PRODUCT USED FOR UNKNOWN INDICATION
     Dosage: 1 DF, DAILY

REACTIONS (1)
  - Feeling abnormal [Recovered/Resolved]
